FAERS Safety Report 5270743-9 (Version None)
Quarter: 2007Q1

REPORT INFORMATION
  Report Type: 
  Country: None (occurrence: None)
  Receive Date: 20070319
  Receipt Date: 20070319
  Transmission Date: 20070707
  Serious: Yes (Other)
  Sender: FDA-Public Use
  Company Number: None

PATIENT
  Age: 61 Year
  Sex: Female
  Weight: 99.3377 kg

DRUGS (3)
  1. HUMIRA [Suspect]
     Indication: RHEUMATOID ARTHRITIS
     Dosage: 40 EVERY TWO WEEKS SQ
     Route: 058
     Dates: start: 20051128, end: 20060112
  2. LEFLUNOMIDE [Suspect]
     Indication: RHEUMATOID ARTHRITIS
     Dosage: 20 DAILY PO
     Route: 048
  3. PREDINISONE [Concomitant]

REACTIONS (1)
  - GRANULOMATOUS LIVER DISEASE [None]
